FAERS Safety Report 17140730 (Version 2)
Quarter: 2019Q4

REPORT INFORMATION
  Report Type: Spontaneous
  Country: DE (occurrence: DE)
  Receive Date: 20191211
  Receipt Date: 20191214
  Transmission Date: 20200122
  Serious: Yes (Hospitalization)
  Sender: FDA-Public Use
  Company Number: DE-MYLANLABS-2019M1120243

PATIENT
  Age: 74 Year
  Sex: Female
  Weight: 75 kg

DRUGS (13)
  1. NORSPAN [Concomitant]
     Active Substance: BUPRENORPHINE
     Dosage: 5 MCG,1X/WOCHE, PFLASTER TRANSDERMAL
     Route: 062
  2. ACETYLSALICYLSAEURE [Concomitant]
     Active Substance: ASPIRIN
     Dosage: 100 MG, 1-0-0-0, TABLETTEN
     Route: 048
  3. ATORVASTATIN [Concomitant]
     Active Substance: ATORVASTATIN
     Dosage: 60 MG, 0-0-1-0, TABLETTEN
     Route: 048
  4. VALSARTAN. [Concomitant]
     Active Substance: VALSARTAN
     Dosage: 80 MG, 1-0-1-0, TABLETTEN
     Route: 048
  5. METAMIZOL                          /06276701/ [Concomitant]
     Active Substance: METAMIZOLE
     Dosage: 500 MG, BEDARF, TABLETTEN
     Route: 048
  6. EZETIMIB MEPHA TEVA [Concomitant]
     Dosage: 10 MG, 0-0-1-0, TABLETTEN
     Route: 048
  7. TORASEMIDE [Suspect]
     Active Substance: TORSEMIDE
     Indication: PRODUCT USED FOR UNKNOWN INDICATION
     Dosage: 10 MG, 1-0-0-0, TABLETTEN
     Route: 048
  8. THYRONAJOD [Concomitant]
     Active Substance: LEVOTHYROXINE SODIUM\POTASSIUM IODIDE
     Dosage: 50|196.2 MICROGRAM, 1-0-0-0, TABLETTEN
     Route: 048
  9. NEBIVOLOL GLENMARK [Concomitant]
     Dosage: 5 MG, 0.5-0-0-0, TABLETTEN
     Route: 048
  10. PANTOPRAZOL                        /01263201/ [Concomitant]
     Active Substance: PANTOPRAZOLE
     Dosage: 20 MG, 1-0-0-0, TABLETTEN
     Route: 048
  11. VIGANTOLETTEN [Concomitant]
     Active Substance: CHOLECALCIFEROL
     Dosage: 1000 IE, 0-1-0-0, TABLETTEN
     Route: 048
  12. VIANI [Concomitant]
     Active Substance: FLUTICASONE PROPIONATE\SALMETEROL XINAFOATE
     Dosage: 50|250 MCG,1-0-0-0, DOSIERAEROSOL
     Route: 055
  13. PREDNISOLON                        /00016201/ [Concomitant]
     Active Substance: PREDNISOLONE
     Dosage: 10 MG, 0.5-0-0-0, TABLETTEN
     Route: 048

REACTIONS (4)
  - Product monitoring error [Unknown]
  - Fall [Unknown]
  - Musculoskeletal pain [Unknown]
  - Electrolyte imbalance [Unknown]
